FAERS Safety Report 20447503 (Version 1)
Quarter: 2022Q1

REPORT INFORMATION
  Report Type: Report from Study
  Country: US (occurrence: US)
  Receive Date: 20220209
  Receipt Date: 20220209
  Transmission Date: 20220424
  Serious: No
  Sender: FDA-Public Use
  Company Number: US-HRARD-202000850

PATIENT
  Age: 47 Year
  Sex: Male

DRUGS (5)
  1. MITOTANE [Suspect]
     Active Substance: MITOTANE
     Route: 048
     Dates: start: 20200911
  2. MITOTANE [Suspect]
     Active Substance: MITOTANE
     Dosage: I TABLET BID FOR ONE WEEK
     Route: 048
     Dates: start: 20201028
  3. MITOTANE [Suspect]
     Active Substance: MITOTANE
     Dosage: INCREASE TO 01 TABLET TID
     Route: 048
     Dates: start: 202011
  4. MITOTANE [Suspect]
     Active Substance: MITOTANE
     Dosage: 1500 MG IN THE MORNING, AND 1500 MG IN THE AFTERNOON.
     Route: 048
  5. HYDROCORTISONE [Concomitant]
     Active Substance: HYDROCORTISONE

REACTIONS (11)
  - Dry mouth [Not Recovered/Not Resolved]
  - Gastrooesophageal reflux disease [Not Recovered/Not Resolved]
  - Ageusia [Recovering/Resolving]
  - Pigmentation lip [Not Recovered/Not Resolved]
  - Libido decreased [Not Recovered/Not Resolved]
  - Depression [Not Recovered/Not Resolved]
  - Fatigue [Not Recovered/Not Resolved]
  - Asthenia [Not Recovered/Not Resolved]
  - Nausea [Not Recovered/Not Resolved]
  - Diarrhoea [Not Recovered/Not Resolved]
  - Off label use [Unknown]

NARRATIVE: CASE EVENT DATE: 20200911
